FAERS Safety Report 8623464-6 (Version None)
Quarter: 2012Q3

REPORT INFORMATION
  Report Type: 
  Country: None (occurrence: None)
  Receive Date: 20120827
  Receipt Date: 20120820
  Transmission Date: 20120928
  Serious: Yes (Other)
  Sender: FDA-Public Use
  Company Number: CA-JNJFOC-20120810523

PATIENT
  Sex: Male
  Weight: 131.4 kg

DRUGS (4)
  1. INDOMETHACIN [Concomitant]
     Indication: GOUT
     Route: 065
     Dates: start: 20120701
  2. COLCHICINE [Concomitant]
     Indication: GOUT
     Route: 065
     Dates: start: 20120701
  3. REMICADE [Suspect]
     Indication: CROHN'S DISEASE
     Route: 042
     Dates: start: 20120320
  4. ALLOPURINOL [Concomitant]
     Indication: GOUT
     Route: 065

REACTIONS (4)
  - BLISTER [None]
  - EXFOLIATIVE RASH [None]
  - OEDEMA PERIPHERAL [None]
  - GOUT [None]
